FAERS Safety Report 7804007-3 (Version None)
Quarter: 2011Q4

REPORT INFORMATION
  Report Type: 
  Country: None (occurrence: None)
  Receive Date: 20111010
  Receipt Date: 20111003
  Transmission Date: 20120403
  Serious: Yes (Other)
  Sender: FDA-Public Use
  Company Number: US-JNJFOC-20100707913

PATIENT
  Sex: Female
  Weight: 51.26 kg

DRUGS (67)
  1. FENTANYL [Suspect]
     Indication: PAIN
     Route: 062
     Dates: start: 20010101, end: 20010101
  2. DURAGESIC-100 [Suspect]
     Route: 062
     Dates: start: 20100101
  3. DURAGESIC-100 [Suspect]
     Route: 062
     Dates: start: 20100831
  4. DURAGESIC-100 [Suspect]
     Indication: BACK PAIN
     Route: 062
     Dates: start: 20100707
  5. DURAGESIC-100 [Suspect]
     Route: 062
     Dates: start: 20100707
  6. FENTANYL-100 [Suspect]
     Route: 062
  7. FENTANYL-100 [Suspect]
     Route: 062
     Dates: start: 20100602
  8. NEXIUM [Concomitant]
     Indication: GASTROOESOPHAGEAL REFLUX DISEASE
     Route: 048
     Dates: start: 20010101
  9. TEMAZEPAM [Concomitant]
     Route: 065
     Dates: start: 20100610
  10. DIAZEPAM [Concomitant]
     Dosage: 28 DAYS
     Route: 065
     Dates: start: 20100602
  11. DIAZEPAM [Concomitant]
     Dosage: 28 DAYS
     Route: 065
     Dates: start: 20100831
  12. DURAGESIC-100 [Suspect]
     Route: 062
     Dates: start: 20100803
  13. DURAGESIC-100 [Suspect]
     Route: 062
     Dates: start: 20100101
  14. DURAGESIC-100 [Suspect]
     Route: 062
     Dates: start: 20100610
  15. DURAGESIC-100 [Suspect]
     Indication: PAIN
     Route: 062
     Dates: start: 20090101, end: 20100101
  16. FENTANYL-100 [Suspect]
     Route: 062
     Dates: start: 20100504
  17. FENTANYL-100 [Suspect]
     Route: 062
     Dates: start: 20100602
  18. TEMAZEPAM [Concomitant]
     Dosage: AT BEDTIME
     Route: 065
     Dates: start: 20100831
  19. DURAGESIC-100 [Suspect]
     Route: 062
     Dates: start: 20100101
  20. DURAGESIC-100 [Suspect]
     Route: 062
     Dates: start: 20100831
  21. DURAGESIC-100 [Suspect]
     Route: 062
     Dates: start: 20100610
  22. DURAGESIC-100 [Suspect]
     Route: 062
     Dates: start: 20100707
  23. FENTANYL-100 [Suspect]
     Route: 062
     Dates: start: 20100602
  24. TEMAZEPAM [Concomitant]
     Route: 065
     Dates: start: 20100803
  25. DIAZEPAM [Concomitant]
     Dosage: 28 DAYS
     Route: 065
     Dates: start: 20100707
  26. UNKNOWN MEDICATION [Concomitant]
     Indication: PRODUCT USED FOR UNKNOWN INDICATION
     Route: 065
  27. DURAGESIC-100 [Suspect]
     Route: 062
     Dates: start: 20100707
  28. DURAGESIC-100 [Suspect]
     Dosage: 50UG/HR+100UG/HR
     Route: 062
     Dates: start: 20100101
  29. DURAGESIC-100 [Suspect]
     Route: 062
     Dates: start: 20100610
  30. DURAGESIC-100 [Suspect]
     Route: 062
     Dates: start: 20100707
  31. DURAGESIC-100 [Suspect]
     Route: 062
     Dates: start: 20100803
  32. DURAGESIC-100 [Suspect]
     Dosage: 50UG/HR+100UG/HR
     Route: 062
     Dates: start: 20100101
  33. DURAGESIC-100 [Suspect]
     Indication: CARPAL TUNNEL SYNDROME
     Route: 062
     Dates: start: 20100101
  34. DURAGESIC-100 [Suspect]
     Dosage: 50UG/HR+100UG/HR
     Route: 062
     Dates: start: 20100101
  35. FENTANYL-100 [Suspect]
     Route: 062
  36. TEMAZEPAM [Concomitant]
     Route: 065
     Dates: start: 20100602
  37. DURAGESIC-100 [Suspect]
     Dosage: 50UG/HR+100UG/HR
     Route: 062
     Dates: start: 20100101
  38. DURAGESIC-100 [Suspect]
     Route: 062
     Dates: start: 20090101, end: 20100101
  39. DURAGESIC-100 [Suspect]
     Route: 062
     Dates: start: 20100101
  40. FENTANYL-100 [Suspect]
     Indication: BACK PAIN
     Route: 062
     Dates: start: 20100504
  41. FENTANYL-100 [Suspect]
     Indication: PAIN
     Route: 062
     Dates: start: 20100101, end: 20100101
  42. TEMAZEPAM [Concomitant]
     Route: 065
     Dates: start: 20100707
  43. TEMAZEPAM [Concomitant]
     Route: 065
     Dates: start: 20100504
  44. TEMAZEPAM [Concomitant]
     Route: 065
     Dates: start: 20100709
  45. DIAZEPAM [Concomitant]
     Dosage: 28 DAYS
     Route: 065
     Dates: start: 20100610
  46. DURAGESIC-100 [Suspect]
     Indication: ARTHRALGIA
     Route: 062
     Dates: start: 20100610
  47. DURAGESIC-100 [Suspect]
     Route: 062
     Dates: start: 20090101, end: 20100101
  48. DURAGESIC-100 [Suspect]
     Route: 062
     Dates: start: 20100610
  49. FENTANYL-100 [Suspect]
     Indication: PAIN IN EXTREMITY
     Route: 062
  50. DURAGESIC-100 [Suspect]
     Route: 062
     Dates: start: 20100831
  51. DURAGESIC-100 [Suspect]
     Route: 062
     Dates: start: 20100803
  52. DURAGESIC-100 [Suspect]
     Indication: PAIN IN EXTREMITY
     Route: 062
     Dates: start: 20090101, end: 20100101
  53. DURAGESIC-100 [Suspect]
     Route: 062
     Dates: start: 20100831
  54. DURAGESIC-100 [Suspect]
     Route: 062
     Dates: start: 20100803
  55. DURAGESIC-100 [Suspect]
     Dosage: 50UG/HR+100UG/HR
     Route: 062
     Dates: start: 20100101
  56. FENTANYL-100 [Suspect]
     Route: 062
     Dates: start: 20100504
  57. DURAGESIC-100 [Suspect]
     Route: 062
     Dates: end: 20090101
  58. DIAZEPAM [Concomitant]
     Dosage: 28 DAYS
     Route: 065
     Dates: start: 20100504
  59. DURAGESIC-100 [Suspect]
     Route: 062
     Dates: start: 20090101, end: 20100101
  60. DURAGESIC-100 [Suspect]
     Route: 062
     Dates: start: 20100831
  61. DURAGESIC-100 [Suspect]
     Route: 062
     Dates: start: 20100803
  62. FENTANYL-100 [Suspect]
     Route: 062
     Dates: start: 20100101, end: 20100101
  63. FENTANYL-100 [Suspect]
     Route: 062
     Dates: start: 20100101, end: 20100101
  64. DURAGESIC-100 [Suspect]
     Route: 062
     Dates: end: 20090101
  65. NEURONTIN [Concomitant]
     Indication: ARTHRALGIA
     Route: 048
     Dates: start: 19990101
  66. DIAZEPAM [Concomitant]
     Dosage: 28 DAYS
     Route: 065
     Dates: start: 20100831
  67. DIAZEPAM [Concomitant]
     Dosage: 28 DAYS
     Route: 065
     Dates: start: 20100803

REACTIONS (16)
  - COLONOSCOPY [None]
  - SUTURE INSERTION [None]
  - BACK PAIN [None]
  - IRRITABILITY [None]
  - ARTHROSCOPY [None]
  - HYPERSENSITIVITY [None]
  - MALAISE [None]
  - DRUG INEFFECTIVE [None]
  - FEELING JITTERY [None]
  - KYPHOSCOLIOSIS [None]
  - PAIN [None]
  - THERAPEUTIC PROCEDURE [None]
  - RESTLESSNESS [None]
  - OSTEOARTHRITIS [None]
  - SPLINTER [None]
  - MYALGIA [None]
